FAERS Safety Report 6444413-5 (Version None)
Quarter: 2009Q4

REPORT INFORMATION
  Report Type: 
  Country: None (occurrence: None)
  Receive Date: 20091118
  Receipt Date: 20091106
  Transmission Date: 20100525
  Serious: Yes (Other)
  Sender: FDA-Public Use
  Company Number: US-ELI_LILLY_AND_COMPANY-US200911002239

PATIENT
  Sex: Female

DRUGS (1)
  1. EVISTA [Suspect]
     Dosage: UNK, UNKNOWN
     Route: 065
     Dates: start: 20000101, end: 20080101

REACTIONS (4)
  - BONE DENSITY DECREASED [None]
  - DRUG WITHDRAWAL SYNDROME [None]
  - RENAL DISORDER [None]
  - RETINAL ANEURYSM [None]
